FAERS Safety Report 18439186 (Version 1)
Quarter: 2020Q4

REPORT INFORMATION
  Report Type: Report from Study
  Country: JP (occurrence: JP)
  Receive Date: 20201028
  Receipt Date: 20201028
  Transmission Date: 20210114
  Serious: Yes (Hospitalization, Other)
  Sender: FDA-Public Use
  Company Number: JP-TAKEDA-2020TUS044556

PATIENT
  Age: 50 Year
  Sex: Female
  Weight: 53.7 kg

DRUGS (21)
  1. DARATUMUMAB [Suspect]
     Active Substance: DARATUMUMAB
     Indication: PLASMA CELL MYELOMA
     Dosage: 1800 MILLIGRAM, 1/WEEK
     Route: 058
     Dates: start: 20191007, end: 20191118
  2. LENALIDOMIDE [Suspect]
     Active Substance: LENALIDOMIDE
     Dosage: 20 MILLIGRAM, QD
     Route: 048
     Dates: start: 20191007, end: 20191122
  3. DEXAMETHASONE. [Suspect]
     Active Substance: DEXAMETHASONE
     Dosage: 12 MILLIGRAM
     Route: 048
     Dates: start: 20191123
  4. ZOLPIDEM [Concomitant]
     Active Substance: ZOLPIDEM TARTRATE
     Indication: INSOMNIA
     Dosage: 5 MILLIGRAM
     Route: 048
     Dates: start: 20191008
  5. BORTEZOMIB. [Suspect]
     Active Substance: BORTEZOMIB
     Indication: PLASMA CELL MYELOMA
     Dosage: 1.3 MILLIGRAM/SQ. METER
     Route: 058
     Dates: start: 20191007
  6. MAGNESIUM OXIDE. [Concomitant]
     Active Substance: MAGNESIUM OXIDE
     Indication: CONSTIPATION
     Dosage: 15 MILLIGRAM, TID
     Route: 048
     Dates: start: 20190919
  7. RELUGOLIX. [Concomitant]
     Active Substance: RELUGOLIX
     Indication: MENORRHAGIA
     Dosage: 40 MILLIGRAM, QD
     Route: 048
     Dates: start: 20191018
  8. BAKTAR [Concomitant]
     Active Substance: SULFAMETHOXAZOLE\TRIMETHOPRIM
     Indication: INFECTION PROPHYLAXIS
     Dosage: UNK, 2/WEEK
     Route: 048
     Dates: start: 20190926
  9. LANSOPRAZOLE. [Concomitant]
     Active Substance: LANSOPRAZOLE
     Indication: GASTRITIS PROPHYLAXIS
     Dosage: 15 MILLIGRAM, QD
     Route: 048
     Dates: start: 20190920
  10. DARATUMUMAB [Suspect]
     Active Substance: DARATUMUMAB
     Dosage: 1800 MILLIGRAM, Q3WEEKS
     Route: 058
     Dates: start: 20191119
  11. LENALIDOMIDE [Suspect]
     Active Substance: LENALIDOMIDE
     Dosage: 15 MILLIGRAM
     Route: 048
     Dates: start: 20191123
  12. DEXAMETHASONE. [Suspect]
     Active Substance: DEXAMETHASONE
     Indication: PLASMA CELL MYELOMA
     Dosage: 20 MILLIGRAM
     Route: 048
     Dates: start: 20191007, end: 20191122
  13. PANTETHINE [Concomitant]
     Active Substance: PANTETHINE
     Indication: CONSTIPATION
     Dosage: 200 MILLIGRAM, TID
     Route: 048
     Dates: start: 20190919
  14. LENALIDOMIDE [Suspect]
     Active Substance: LENALIDOMIDE
     Indication: PLASMA CELL MYELOMA
     Dosage: 25 MILLIGRAM, QD
     Route: 048
     Dates: start: 20191007
  15. ZOVIRAX ACTIVE [Concomitant]
     Indication: PROPHYLAXIS
     Dosage: 200 MILLIGRAM, QD
     Route: 048
     Dates: start: 20191008
  16. PROMAC D [Concomitant]
     Active Substance: POLAPREZINC
     Indication: TASTE DISORDER
     Dosage: 5 MILLIGRAM, BID
     Route: 048
     Dates: start: 20191108
  17. SENNA SPP. EXTRACT [Concomitant]
     Indication: CONSTIPATION
     Dosage: 80 MILLIGRAM
     Route: 048
     Dates: start: 20190927
  18. OXYCONTIN [Concomitant]
     Active Substance: OXYCODONE HYDROCHLORIDE
     Indication: CHEST PAIN
     Dosage: 5 MILLIGRAM, BID
     Route: 048
     Dates: start: 20191029
  19. TRAVELMIN [DIPHENHYDRAMINE SALICYLATE;DIPROPHYLLINE] [Concomitant]
     Indication: NAUSEA
     Dosage: UNK
     Route: 048
     Dates: start: 20190920
  20. MAGMITT [Concomitant]
     Active Substance: MAGNESIUM OXIDE
     Indication: CONSTIPATION
     Dosage: 660 MILLIGRAM, TID
     Route: 048
     Dates: start: 20191119
  21. LEVOFLOXACIN HEMIHYDRATE [Concomitant]
     Active Substance: LEVOFLOXACIN
     Indication: URINARY TRACT INFECTION
     Dosage: 500 MILLIGRAM, QD
     Route: 048
     Dates: start: 20191112

REACTIONS (1)
  - Intraductal proliferative breast lesion [Recovered/Resolved]

NARRATIVE: CASE EVENT DATE: 20191209
